FAERS Safety Report 8373022-6 (Version None)
Quarter: 2012Q2

REPORT INFORMATION
  Report Type: 
  Country: None (occurrence: None)
  Receive Date: 20120521
  Receipt Date: 20120517
  Transmission Date: 20120825
  Serious: Yes (Hospitalization)
  Sender: FDA-Public Use
  Company Number: US-B.I. PHARMACEUTICALS,INC./RIDGEFIELD-2012-BP-11118BP

PATIENT
  Sex: Female

DRUGS (11)
  1. LEVOTHYROXINE SODIUM [Concomitant]
     Indication: HYPOTHYROIDISM
  2. RESTASIS [Concomitant]
     Indication: DRY EYE
  3. NORCO [Suspect]
     Indication: ARTHRALGIA
     Route: 048
  4. ATELVIA [Concomitant]
     Indication: OSTEOPOROSIS
  5. LORAZEPAM [Concomitant]
  6. HYOSCYAMINE [Concomitant]
  7. ADVAIR DISKUS 100/50 [Concomitant]
     Indication: CHRONIC OBSTRUCTIVE PULMONARY DISEASE
  8. PANTOPRAZOLE [Concomitant]
     Indication: GASTROOESOPHAGEAL REFLUX DISEASE
  9. PROVENTIL [Concomitant]
     Indication: CHRONIC OBSTRUCTIVE PULMONARY DISEASE
  10. SPIRIVA [Suspect]
     Indication: CHRONIC OBSTRUCTIVE PULMONARY DISEASE
     Dosage: 18 MCG
     Route: 055
     Dates: start: 20070101
  11. NORTRIPTYLINE HCL [Concomitant]

REACTIONS (2)
  - HIP FRACTURE [None]
  - CONSTIPATION [None]
